FAERS Safety Report 6791066-2 (Version None)
Quarter: 2010Q2

REPORT INFORMATION
  Report Type: 
  Country: None (occurrence: None)
  Receive Date: 20100624
  Receipt Date: 20100616
  Transmission Date: 20101027
  Serious: Yes (Hospitalization)
  Sender: FDA-Public Use
  Company Number: FR-BRISTOL-MYERS SQUIBB COMPANY-15160948

PATIENT
  Age: 69 Year
  Sex: Male

DRUGS (5)
  1. ERBITUX [Suspect]
     Indication: COLORECTAL CANCER
     Route: 042
     Dates: start: 20100104, end: 20100315
  2. OXALIPLATIN [Suspect]
     Indication: COLORECTAL CANCER
     Route: 042
     Dates: start: 20100104, end: 20100315
  3. FLUOROURACIL [Suspect]
     Indication: COLORECTAL CANCER
     Route: 042
     Dates: start: 20100104, end: 20100315
  4. LIPANTHYL [Concomitant]
     Dates: start: 20000101
  5. SECTRAL [Concomitant]
     Dates: start: 19900101

REACTIONS (1)
  - PULMONARY FIBROSIS [None]
